FAERS Safety Report 23421891 (Version 2)
Quarter: 2024Q1

REPORT INFORMATION
  Report Type: Spontaneous
  Country: US (occurrence: None)
  Receive Date: 20240119
  Receipt Date: 20240308
  Transmission Date: 20240409
  Serious: Yes (Life-Threatening, Hospitalization)
  Sender: FDA-Public Use
  Company Number: 2024A014723

PATIENT
  Age: 19172 Day
  Sex: Male
  Weight: 98.4 kg

DRUGS (1)
  1. IMFINZI [Suspect]
     Active Substance: DURVALUMAB
     Indication: Cholangiocarcinoma
     Route: 042
     Dates: start: 20231201, end: 20240112

REACTIONS (5)
  - Nephritis [Not Recovered/Not Resolved]
  - Acute kidney injury [Unknown]
  - Blood creatinine increased [Unknown]
  - Haemoglobin [Unknown]
  - Pyrexia [Unknown]

NARRATIVE: CASE EVENT DATE: 20230112
